FAERS Safety Report 10051740 (Version 1)
Quarter: 2014Q2

REPORT INFORMATION
  Report Type: Report from Study
  Country: GB (occurrence: GB)
  Receive Date: 20140401
  Receipt Date: 20140401
  Transmission Date: 20141212
  Serious: Yes (Death, Other)
  Sender: FDA-Public Use
  Company Number: GB-AMGEN-GBRCT2014022504

PATIENT
  Age: 72 Year
  Sex: Female
  Weight: 51 kg

DRUGS (7)
  1. ETANERCEPT [Suspect]
     Indication: RHEUMATOID ARTHRITIS
     Dosage: 25 MG, 2 TIMES/WK
     Route: 058
     Dates: start: 20040319, end: 20091115
  2. ADCAL                              /00056901/ [Concomitant]
     Dosage: UNK UNK, UNK
     Route: 065
  3. CELECOXIB [Concomitant]
     Dosage: UNK UNK, UNK
     Route: 065
  4. METHOTREXATE [Concomitant]
     Dosage: UNK
     Route: 065
  5. PARACETAMOL [Concomitant]
     Dosage: UNK UNK, UNK
     Route: 065
  6. PREDNISOLONE [Concomitant]
     Dosage: UNK UNK, UNK
     Route: 065
  7. SULFASALAZINE [Concomitant]
     Dosage: UNK
     Route: 065
     Dates: start: 20030615, end: 20040315

REACTIONS (1)
  - Malignant peritoneal neoplasm [Fatal]
